FAERS Safety Report 4695111-X (Version None)
Quarter: 2005Q2

REPORT INFORMATION
  Report Type: 
  Country: None (occurrence: None)
  Receive Date: 20050617
  Receipt Date: 20050607
  Transmission Date: 20051028
  Serious: Yes (Hospitalization)
  Sender: FDA-Public Use
  Company Number: 2005084253

PATIENT
  Age: 79 Year
  Sex: Female

DRUGS (3)
  1. NORVASC [Suspect]
     Indication: ILL-DEFINED DISORDER
     Dosage: 10 MG, ORAL
     Route: 048
     Dates: start: 20050402, end: 20050409
  2. PROCAPTAN (PERINDOPRIL ERBUMINE) [Suspect]
     Indication: ILL-DEFINED DISORDER
     Dosage: 4 MG (4 MG, QD), ORAL
     Route: 048
     Dates: start: 20050401, end: 20050409
  3. ESOMEPRAZOLE (ESOMERPRAZOLE) [Suspect]
     Indication: ILL-DEFINED DISORDER
     Dosage: 20 MG (DAILY), ORAL
     Route: 048
     Dates: start: 20050331, end: 20050409

REACTIONS (2)
  - DERMATITIS EXFOLIATIVE [None]
  - RASH PRURITIC [None]
